FAERS Safety Report 16201721 (Version 1)
Quarter: 2019Q2

REPORT INFORMATION
  Report Type: Spontaneous
  Country: US (occurrence: US)
  Receive Date: 20190415
  Receipt Date: 20190415
  Transmission Date: 20190711
  Serious: Yes (Hospitalization)
  Sender: FDA-Public Use
  Company Number: None

PATIENT
  Age: 66 Year
  Sex: Male

DRUGS (6)
  1. CYMBALTA, DULOXETINE, ENTRESTO [Concomitant]
  2. GEMFIBROZIL, MAG OXIDE, MECLIZINE [Concomitant]
  3. HUMIRA [Suspect]
     Active Substance: ADALIMUMAB
     Indication: PROCTITIS ULCERATIVE
     Dosage: ?          OTHER FREQUENCY:WEEKLY;?
     Route: 058
     Dates: start: 20151020
  4. PROTONIX, SOTALOL, URO-MAG [Concomitant]
  5. VALIUM, VALSARTAN, VITAMIN B12 [Concomitant]
  6. ATORVASTATIN, CANASA, CARVEDILOL [Concomitant]

REACTIONS (2)
  - Diarrhoea [None]
  - Condition aggravated [None]

NARRATIVE: CASE EVENT DATE: 20190413
